FAERS Safety Report 9887886 (Version 1)
Quarter: 2014Q1

REPORT INFORMATION
  Report Type: Spontaneous
  Country: US (occurrence: None)
  Receive Date: 20140207
  Receipt Date: 20140207
  Transmission Date: 20141002
  Serious: Yes (Hospitalization)
  Sender: FDA-Public Use
  Company Number: None

PATIENT
  Age: 69 Year
  Sex: Male
  Weight: 79.4 kg

DRUGS (2)
  1. SULFAMETHOXAZOLE/TRIMETHOPRIM [Suspect]
     Indication: CELLULITIS
     Dosage: 2 TAB, BID, PO
     Route: 048
     Dates: start: 20121206, end: 20121216
  2. LOSARTAN [Suspect]
     Indication: HYPERTENSION
     Route: 048
     Dates: start: 20060118, end: 20121219

REACTIONS (4)
  - Fatigue [None]
  - Asthenia [None]
  - Lethargy [None]
  - Renal failure acute [None]
